FAERS Safety Report 7327806-3 (Version None)
Quarter: 2011Q1

REPORT INFORMATION
  Report Type: 
  Country: None (occurrence: None)
  Receive Date: 20110303
  Receipt Date: 20110228
  Transmission Date: 20110831
  Serious: No
  Sender: FDA-Public Use
  Company Number: US-PFIZER INC-2011006700

PATIENT
  Sex: Female
  Weight: 77.1 kg

DRUGS (7)
  1. CHANTIX [Suspect]
     Indication: SMOKING CESSATION THERAPY
     Dosage: 0.5 MG, 1X/DAY
     Route: 048
     Dates: start: 20110102
  2. CALCIUM [Concomitant]
     Dosage: UNK
  3. VITAMIN D [Concomitant]
  4. ALEVE [Concomitant]
     Indication: PAIN
     Dosage: UNK
  5. FOSAMAX [Suspect]
     Dosage: UNK
  6. CHANTIX [Suspect]
     Dosage: UNK
     Route: 048
     Dates: start: 20110109
  7. FISH OIL [Concomitant]
     Dosage: UNK

REACTIONS (7)
  - TOOTH LOSS [None]
  - DYSGEUSIA [None]
  - CONSTIPATION [None]
  - DYSPEPSIA [None]
  - ABNORMAL DREAMS [None]
  - DECREASED APPETITE [None]
  - DRUG INEFFECTIVE [None]
